FAERS Safety Report 18891226 (Version 3)
Quarter: 2022Q1

REPORT INFORMATION
  Report Type: Spontaneous
  Country: JP (occurrence: JP)
  Receive Date: 20210215
  Receipt Date: 20220119
  Transmission Date: 20220423
  Serious: Yes (Hospitalization, Other)
  Sender: FDA-Public Use
  Company Number: JP-KYOWAKIRIN-2021AKK001899

PATIENT
  Age: 8 Decade
  Sex: Male

DRUGS (18)
  1. PEGFILGRASTIM [Suspect]
     Active Substance: PEGFILGRASTIM
     Indication: Colony stimulating factor therapy
     Dosage: 3.6 MG, QD
     Route: 058
     Dates: start: 20201002
  2. DOCETAXEL [Suspect]
     Active Substance: DOCETAXEL
     Indication: Breast cancer male
     Dosage: 130 MG, QD
     Route: 041
     Dates: start: 20200930
  3. CYCLOPHOSPHAMIDE [Suspect]
     Active Substance: CYCLOPHOSPHAMIDE
     Indication: Breast cancer male
     Dosage: 1000 MG, QD
     Route: 041
     Dates: start: 20200930
  4. NICARDIPINE HYDROCHLORIDE [Concomitant]
     Active Substance: NICARDIPINE HYDROCHLORIDE
     Indication: Product used for unknown indication
     Dosage: UNK, BID (AFTER BREAKFAST AND DINNER)
     Route: 048
  5. VALSARTAN [Concomitant]
     Active Substance: VALSARTAN
     Indication: Product used for unknown indication
     Dosage: 160 MG, QD (AFTER BREAKFAST)
     Route: 048
  6. SPIRONOLACTONE [Concomitant]
     Active Substance: SPIRONOLACTONE
     Indication: Product used for unknown indication
     Dosage: 25 MG, QD (AFTER BREAKFAST)
     Route: 048
  7. SPIRONOLACTONE [Concomitant]
     Active Substance: SPIRONOLACTONE
     Dosage: 25 MG, QD (AFTER BREAKFAST)
     Route: 048
  8. FEBUXOSTAT [Concomitant]
     Active Substance: FEBUXOSTAT
     Indication: Product used for unknown indication
     Dosage: 20 MG, QD (AFTER BREAKFAST)
     Route: 048
  9. FLUTICASONE PROPIONATE\SALMETEROL XINAFOATE [Concomitant]
     Active Substance: FLUTICASONE PROPIONATE\SALMETEROL XINAFOATE
     Indication: Product used for unknown indication
     Dosage: UNK, BID (AFTER BREAKFAST AND DINNER, 1 INHALATION/DOSE)
  10. LEVOCETIRIZINE HYDROCHLORIDE [Concomitant]
     Active Substance: LEVOCETIRIZINE HYDROCHLORIDE
     Indication: Product used for unknown indication
     Dosage: 5 MG, QD (AFTER DINNER)
     Route: 048
  11. RINDERON V [Concomitant]
     Active Substance: BETAMETHASONE VALERATE
     Indication: Pruritus
     Dosage: UNK, ON LIMBS/ABDOMEN WHEN ITCHY
     Route: 061
  12. LOCOID [Concomitant]
     Active Substance: HYDROCORTISONE BUTYRATE
     Indication: Pruritus
     Dosage: UNK, ON LIMBS/ABDOMEN WHEN ITCHY
     Route: 061
  13. EPINASTINE [EPINASTINE HYDROCHLORIDE] [Concomitant]
     Indication: Pruritus
     Dosage: 20 MG, QD (BEFORE BEDTIME WHEN ITCHY)
     Route: 048
  14. BETAMETHASONE\DEXCHLORPHENIRAMINE MALEATE [Concomitant]
     Active Substance: BETAMETHASONE\DEXCHLORPHENIRAMINE MALEATE
     Indication: Pruritus
     Dosage: 1 DF, QD (BEFORE BEDTIME WHEN ITCHY)
     Route: 048
  15. REBAMIPIDE [Concomitant]
     Active Substance: REBAMIPIDE
     Indication: Pruritus
     Dosage: 100 MG, QD (BEFORE BEDTIME WHEN ITCHY)
     Route: 048
  16. MAGNESIUM OXIDE [Concomitant]
     Active Substance: MAGNESIUM OXIDE
     Indication: Product used for unknown indication
     Dosage: 990 MG, TID (AFTER MEALS)
     Route: 048
  17. ALESION [Concomitant]
     Active Substance: EPINASTINE HYDROCHLORIDE
     Indication: Product used for unknown indication
     Dosage: 10 MG, QD (AFTER DINNER)
     Route: 048
  18. DIOVAN [Concomitant]
     Active Substance: VALSARTAN
     Indication: Product used for unknown indication
     Dosage: 160 MG, QD (AFTER BREAKFAST)
     Route: 048

REACTIONS (2)
  - Septic shock [Recovered/Resolved]
  - Cellulitis [Recovered/Resolved]

NARRATIVE: CASE EVENT DATE: 20201006
